FAERS Safety Report 8538986-6 (Version None)
Quarter: 2012Q3

REPORT INFORMATION
  Report Type: 
  Country: None (occurrence: None)
  Receive Date: 20120726
  Receipt Date: 20120720
  Transmission Date: 20120928
  Serious: Yes (Hospitalization, Other)
  Sender: FDA-Public Use
  Company Number: PHHY2012BR031336

PATIENT
  Sex: Female

DRUGS (4)
  1. GILENYA [Suspect]
     Dosage: 0.5 MG, UNK
     Route: 048
  2. GILENYA [Suspect]
     Dosage: 0.5 MG, UNK
     Route: 048
  3. EQUILID [Suspect]
     Dosage: UNK UKN, UNK
  4. EQUILID [Suspect]
     Dosage: UNK UKN, UNK

REACTIONS (5)
  - MOVEMENT DISORDER [None]
  - FEELING COLD [None]
  - TONGUE DISORDER [None]
  - DELIRIUM [None]
  - LIMB DEFORMITY [None]
